FAERS Safety Report 7705970-1 (Version None)
Quarter: 2011Q3

REPORT INFORMATION
  Report Type: 
  Country: None (occurrence: None)
  Receive Date: 20110824
  Receipt Date: 20110815
  Transmission Date: 20111222
  Serious: No
  Sender: FDA-Public Use
  Company Number: PHHY2011US53162

PATIENT
  Sex: Female

DRUGS (9)
  1. TASIGNA [Suspect]
     Indication: CHRONIC MYELOID LEUKAEMIA
     Dosage: 300 MG, BID
     Route: 048
     Dates: start: 20110526
  2. AVALIDE [Concomitant]
  3. ESTRADIOL [Concomitant]
  4. LEXAPRO [Concomitant]
  5. ONDANSETRON [Concomitant]
  6. ASPIRIN [Concomitant]
  7. ATENOLOL [Concomitant]
  8. METFORMIN HCL [Concomitant]
  9. PANTOPRAZOLE [Concomitant]

REACTIONS (3)
  - NASOPHARYNGITIS [None]
  - DYSPEPSIA [None]
  - SENSATION OF FOREIGN BODY [None]
